FAERS Safety Report 4727502-2 (Version None)
Quarter: 2005Q3

REPORT INFORMATION
  Report Type: 
  Country: None (occurrence: None)
  Receive Date: 20050727
  Receipt Date: 20050727
  Transmission Date: 20060218
  Serious: No
  Sender: FDA-Public Use
  Company Number: None

PATIENT
  Sex: Female

DRUGS (1)
  1. AREDIA [Suspect]
     Indication: GAMMOPATHY
     Dosage: 20MG IV  Q MONTH
     Route: 042
     Dates: start: 20020715, end: 20050718

REACTIONS (5)
  - BONE DISORDER [None]
  - IMPAIRED HEALING [None]
  - OSTEONECROSIS [None]
  - POST PROCEDURAL COMPLICATION [None]
  - PRIMARY SEQUESTRUM [None]
